FAERS Safety Report 15776507 (Version 3)
Quarter: 2019Q2

REPORT INFORMATION
  Report Type: Spontaneous
  Country: JP (occurrence: JP)
  Receive Date: 20181231
  Receipt Date: 20190613
  Transmission Date: 20190711
  Serious: Yes (Death, Hospitalization, Other)
  Sender: FDA-Public Use
  Company Number: JP-JNJFOC-20181230797

PATIENT
  Age: 76 Year
  Sex: Male
  Weight: 62.3 kg

DRUGS (8)
  1. CABAZITAXEL ACETONE [Suspect]
     Active Substance: CABAZITAXEL
     Indication: HORMONE-REFRACTORY PROSTATE CANCER
     Route: 048
     Dates: start: 201807, end: 201810
  2. ZYTIGA [Suspect]
     Active Substance: ABIRATERONE ACETATE
     Indication: HORMONE-REFRACTORY PROSTATE CANCER
     Route: 048
     Dates: start: 20170704, end: 20170718
  3. DECADRON [Concomitant]
     Active Substance: DEXAMETHASONE
     Indication: HORMONE-REFRACTORY PROSTATE CANCER
     Route: 048
     Dates: start: 20170311, end: 20181213
  4. DENOTAS [Concomitant]
     Active Substance: CALCIUM CARBONATE\CHOLECALCIFEROL\MAGNESIUM CARBONATE
     Indication: PROPHYLAXIS
     Route: 048
     Dates: start: 20170920, end: 20181217
  5. BROTIZOLAM [Concomitant]
     Active Substance: BROTIZOLAM
     Indication: INSOMNIA
     Route: 048
     Dates: start: 20181030, end: 20181217
  6. DOCETAXEL. [Concomitant]
     Active Substance: DOCETAXEL
     Route: 065
     Dates: start: 201709, end: 201807
  7. ZYTIGA [Suspect]
     Active Substance: ABIRATERONE ACETATE
     Indication: HORMONE-REFRACTORY PROSTATE CANCER
     Route: 048
     Dates: start: 20181120, end: 20181217
  8. URSODEOXYCHOLIC ACID [Concomitant]
     Active Substance: URSODIOL
     Indication: PROPHYLAXIS
     Route: 048
     Dates: start: 20181120, end: 20181223

REACTIONS (4)
  - Metastases to liver [Unknown]
  - Prostate cancer [Fatal]
  - Hepatic failure [Fatal]
  - Hepatic function abnormal [Fatal]

NARRATIVE: CASE EVENT DATE: 20170704
